FAERS Safety Report 16322825 (Version 7)
Quarter: 2019Q3

REPORT INFORMATION
  Report Type: Spontaneous
  Country: CA (occurrence: CA)
  Receive Date: 20190516
  Receipt Date: 20190920
  Transmission Date: 20191004
  Serious: Yes (Other)
  Sender: FDA-Public Use
  Company Number: CA-CELLTRION INC.-2018CA019999

PATIENT

DRUGS (14)
  1. INFLECTRA [Suspect]
     Active Substance: INFLIXIMAB-DYYB
     Dosage: 3 MG/KG,  (EVERY 0, 2, 6 THEN EVERY 8 WEEKS)
     Route: 042
     Dates: start: 20180806
  2. METHOTREXATE. [Concomitant]
     Active Substance: METHOTREXATE
     Dosage: 25 MG, WEEKLY
     Route: 058
     Dates: start: 201506, end: 2018
  3. INFLECTRA [Suspect]
     Active Substance: INFLIXIMAB-DYYB
     Indication: RHEUMATOID ARTHRITIS
     Dosage: 3 MG/KG,  (EVERY 0, 2, 6 THEN EVERY 8 WEEKS)
     Route: 042
     Dates: start: 20180423, end: 20190316
  4. INFLECTRA [Suspect]
     Active Substance: INFLIXIMAB-DYYB
     Dosage: 5 MG/KG,  EVERY 8 WEEKS
     Route: 042
     Dates: start: 20190509
  5. INFLECTRA [Suspect]
     Active Substance: INFLIXIMAB-DYYB
     Dosage: 3 MG/KG,  (EVERY 0, 2, 6 THEN EVERY 8 WEEKS)
     Route: 042
     Dates: start: 20190316
  6. ACETAMINOPHEN + COD. PHOSP. [Concomitant]
     Active Substance: ACETAMINOPHEN\CODEINE PHOSPHATE
     Indication: PREMEDICATION
     Dosage: 1 G, UNK
     Route: 048
  7. ACETAMINOPHEN + COD. PHOSP. [Concomitant]
     Active Substance: ACETAMINOPHEN\CODEINE PHOSPHATE
     Dosage: 650 MG, UNK
     Route: 048
     Dates: start: 20190509, end: 20190509
  8. INFLECTRA [Suspect]
     Active Substance: INFLIXIMAB-DYYB
     Dosage: 3 MG/KG,  (EVERY 0, 2, 6 THEN EVERY 8 WEEKS)
     Route: 042
     Dates: start: 20181220
  9. FOLIC ACID. [Concomitant]
     Active Substance: FOLIC ACID
     Dosage: 5 MG, UNK (1 TABLET ID)
     Route: 048
  10. INFLECTRA [Suspect]
     Active Substance: INFLIXIMAB-DYYB
     Dosage: 3 MG/KG,  (EVERY 0, 2, 6 THEN EVERY 8 WEEKS)
     Route: 042
     Dates: start: 20180726
  11. INFLECTRA [Suspect]
     Active Substance: INFLIXIMAB-DYYB
     Dosage: 3 MG/KG,  (EVERY 0, 2, 6 THEN EVERY 8 WEEKS)
     Route: 042
     Dates: start: 20180904
  12. SALOFALK [Concomitant]
     Dosage: 1 SUPPOSITORY, 1X/DAY
  13. VITAMIN D [Concomitant]
     Active Substance: VITAMIN D NOS
     Dosage: 1000 IU, WEEKLY
     Route: 065
  14. ACETAMINOPHEN. [Concomitant]
     Active Substance: ACETAMINOPHEN
     Indication: PREMEDICATION
     Dosage: 650 MG, UNK
     Route: 048

REACTIONS (11)
  - Blood pressure fluctuation [Unknown]
  - Inappropriate schedule of product administration [Unknown]
  - Fatigue [Unknown]
  - Oxygen saturation decreased [Unknown]
  - Vein rupture [Unknown]
  - Nausea [Unknown]
  - Dizziness [Unknown]
  - Product use issue [Unknown]
  - Off label use [Unknown]
  - Nephrolithiasis [Unknown]
  - Therapeutic product effect decreased [Unknown]

NARRATIVE: CASE EVENT DATE: 20180423
